FAERS Safety Report 9376614 (Version 2)
Quarter: 2013Q3

REPORT INFORMATION
  Report Type: Spontaneous
  Country: US (occurrence: US)
  Receive Date: 20130701
  Receipt Date: 20130729
  Transmission Date: 20140515
  Serious: Yes (Hospitalization, Other)
  Sender: FDA-Public Use
  Company Number: US-BIOGENIDEC-2013BI058156

PATIENT
  Sex: Male

DRUGS (2)
  1. AVONEX [Suspect]
     Indication: PRODUCT USED FOR UNKNOWN INDICATION
     Route: 030
  2. COPAXONE [Concomitant]
     Indication: MULTIPLE SCLEROSIS

REACTIONS (8)
  - Anaphylactic shock [Recovered/Resolved]
  - Colitis ulcerative [Unknown]
  - Secondary progressive multiple sclerosis [Unknown]
  - Diplopia [Unknown]
  - Mobility decreased [Unknown]
  - Multiple sclerosis relapse [Unknown]
  - Malaise [Unknown]
  - Influenza like illness [Unknown]
